FAERS Safety Report 5048245-4 (Version None)
Quarter: 2006Q3

REPORT INFORMATION
  Report Type: 
  Country: None (occurrence: None)
  Receive Date: 20060711
  Receipt Date: 20051228
  Transmission Date: 20061208
  Serious: Yes (Death)
  Sender: FDA-Public Use
  Company Number: US-SANOFI-SYNTHELABO-F01200502887

PATIENT
  Sex: Male

DRUGS (9)
  1. HYDROCODONE [Concomitant]
     Dosage: UNK
     Route: 065
  2. ASPIRIN [Concomitant]
     Dosage: UNK
     Route: 065
  3. XANAX [Concomitant]
     Dosage: UNK
     Route: 065
  4. AMBIEN [Concomitant]
     Dosage: UNK
     Route: 065
  5. TYLENOL (CAPLET) [Concomitant]
     Dosage: UNK
     Route: 065
  6. AVASTIN [Suspect]
     Dosage: DOSE NOT REPORTED
     Route: 042
     Dates: start: 20050907
  7. FOLINIC ACID [Suspect]
     Dosage: UNKNOWN
  8. FLUOROURACIL [Suspect]
     Dosage: UNKNOWN
  9. OXALIPLATIN [Suspect]
     Indication: COLORECTAL CANCER METASTATIC
     Dosage: UNKNOWN

REACTIONS (10)
  - BLOOD ALKALINE PHOSPHATASE INCREASED [None]
  - BLOOD SODIUM INCREASED [None]
  - BLOOD UREA INCREASED [None]
  - DEHYDRATION [None]
  - GANGRENE [None]
  - LOSS OF CONSCIOUSNESS [None]
  - SEPSIS [None]
  - SHOCK [None]
  - SKIN ULCER [None]
  - TRANSIENT ISCHAEMIC ATTACK [None]
